FAERS Safety Report 11897960 (Version 2)
Quarter: 2016Q1

REPORT INFORMATION
  Report Type: Spontaneous
  Country: JP (occurrence: JP)
  Receive Date: 20160108
  Receipt Date: 20160122
  Transmission Date: 20160526
  Serious: Yes (Death)
  Sender: FDA-Public Use
  Company Number: JP-ELI_LILLY_AND_COMPANY-JP201601002024

PATIENT
  Age: 85 Year
  Sex: Male

DRUGS (5)
  1. ONBREZ [Concomitant]
     Active Substance: INDACATEROL
  2. CYRAMZA [Suspect]
     Active Substance: RAMUCIRUMAB
     Indication: OESOPHAGEAL ADENOCARCINOMA
     Dosage: 200 MG, OTHER
     Route: 042
     Dates: start: 20151211, end: 20151211
  3. NEXIUM [Concomitant]
     Active Substance: ESOMEPRAZOLE MAGNESIUM
  4. CALONAL [Concomitant]
     Active Substance: ACETAMINOPHEN
  5. GOSHAJINKIGAN [Concomitant]
     Active Substance: HERBALS

REACTIONS (1)
  - Pneumonia aspiration [Fatal]
